FAERS Safety Report 9092309 (Version 1)
Quarter: 2013Q1

REPORT INFORMATION
  Report Type: Report from Study
  Country: US (occurrence: US)
  Receive Date: 20130131
  Receipt Date: 20130131
  Transmission Date: 20140127
  Serious: No
  Sender: FDA-Public Use
  Company Number: US-ABBOTT-12P-163-0990730-00

PATIENT
  Age: 63 Year
  Sex: Female

DRUGS (16)
  1. HUMIRA [Suspect]
     Indication: CROHN^S DISEASE
     Dosage: 160MG LOADING DOSE
     Dates: start: 20120922, end: 20120922
  2. HUMIRA [Suspect]
  3. NOVALOG INSULIN FLEX PEN [Concomitant]
     Indication: BLOOD GLUCOSE INCREASED
     Dosage: SLIDING SCALE
  4. NOVALOG INSULIN FLEX PEN [Concomitant]
     Indication: DIABETES MELLITUS
  5. NOVALOG INSULIN 70/30 PEN [Concomitant]
     Indication: DIABETES MELLITUS
     Dosage: 15 MINUTES BEFORE LUNCH AND DINNER
  6. LISINOPRIL [Concomitant]
     Indication: HYPERTENSION
     Dosage: 15/20MG DAILY
     Route: 048
  7. SIMVASTATIN [Concomitant]
     Indication: BLOOD CHOLESTEROL
     Dosage: 10 MG DAILY
     Route: 048
  8. ASACOL [Concomitant]
     Indication: GASTRIC DISORDER
     Route: 048
  9. MELOXICAM [Concomitant]
     Indication: GASTRIC DISORDER
     Dosage: 15 MG DAILY
     Route: 048
  10. ESTRA-NORETH [Concomitant]
     Indication: HORMONE THERAPY
     Dosage: 1.5 MG DAILY
     Route: 048
  11. CINNAMON/CHROMIUM [Concomitant]
     Indication: DIABETES MELLITUS
     Dosage: 500 MG DAILY
     Route: 048
  12. OMEGA 3 [Concomitant]
     Indication: DIABETES MELLITUS
     Dosage: TWO PILLS DAILY
     Route: 048
  13. OMEGA 3 [Concomitant]
     Indication: CARDIAC DISORDER
  14. MVI [Concomitant]
     Indication: PRODUCT USED FOR UNKNOWN INDICATION
     Dosage: 1 PILL DAILY
  15. PROBIOTIC [Concomitant]
     Indication: PROPHYLAXIS
     Dosage: 800 MG DAILY
     Route: 048
  16. TRAMADOL [Concomitant]
     Indication: ARTHRITIS
     Dosage: 1 TAB DAILY OR AS NEEDED

REACTIONS (4)
  - Wrong technique in drug usage process [Recovered/Resolved]
  - Injection site pain [Recovered/Resolved]
  - Incorrect dose administered [Recovered/Resolved]
  - Injection site pain [Not Recovered/Not Resolved]
